FAERS Safety Report 4773139-9 (Version None)
Quarter: 2005Q3

REPORT INFORMATION
  Report Type: 
  Country: None (occurrence: None)
  Receive Date: 20050919
  Receipt Date: 20050906
  Transmission Date: 20060218
  Serious: Yes (Hospitalization)
  Sender: FDA-Public Use
  Company Number: 200108-1623

PATIENT
  Age: 35 Year
  Sex: Male

DRUGS (4)
  1. ACTIFED JOUR ET NUIT (DAY)  (PARACETAMOL, PSEUDOEPHEDRINE) [Suspect]
     Indication: CHRONIC SINUSITIS
     Dosage: 1  BOX PER MONTH, ORAL
     Route: 048
     Dates: start: 19990101
  2. ACTIFED NIGHTTIME (DIPHENHYDRAMINE, PARACETAMOL) [Suspect]
     Indication: CHRONIC SINUSITIS
     Dosage: 1 BOX PER MONTH, ORAL
     Route: 048
     Dates: start: 19990101
  3. PRAZEPAM [Concomitant]
  4. HOMEOPATIC PREPARATION (HOMEPATIC PREPARATION) [Concomitant]

REACTIONS (20)
  - BRAIN SCAN ABNORMAL [None]
  - CEREBRAL HAEMORRHAGE [None]
  - CONVULSION [None]
  - EPILEPSY [None]
  - FUNGAL INFECTION [None]
  - HAEMATOMA [None]
  - HAEMORRHAGE [None]
  - HEADACHE [None]
  - HYPERAESTHESIA [None]
  - LYMPHADENITIS [None]
  - LYMPHADENOPATHY [None]
  - MENINGEAL DISORDER [None]
  - NERVOUS SYSTEM DISORDER [None]
  - NUCLEAR MAGNETIC RESONANCE IMAGING BRAIN ABNORMAL [None]
  - OEDEMA [None]
  - OEDEMA PERIPHERAL [None]
  - PERSONALITY CHANGE [None]
  - POST-TRAUMATIC AMNESTIC DISORDER [None]
  - TINNITUS [None]
  - TONGUE BITING [None]
